FAERS Safety Report 7354016-6 (Version None)
Quarter: 2011Q1

REPORT INFORMATION
  Report Type: 
  Country: None (occurrence: None)
  Receive Date: 20110315
  Receipt Date: 20110307
  Transmission Date: 20110831
  Serious: Yes (Death)
  Sender: FDA-Public Use
  Company Number: PHHY2011US20320

PATIENT
  Sex: Male
  Weight: 56.689 kg

DRUGS (1)
  1. EXJADE [Suspect]
     Indication: NEOPLASM
     Dosage: 250 MG DAILY
     Route: 048
     Dates: start: 20090421

REACTIONS (1)
  - DEATH [None]
